FAERS Safety Report 6898229-6 (Version None)
Quarter: 2010Q3

REPORT INFORMATION
  Report Type: 
  Country: None (occurrence: None)
  Receive Date: 20100802
  Receipt Date: 20070927
  Transmission Date: 20110219
  Serious: No
  Sender: FDA-Public Use
  Company Number: US-PFIZER INC-2007059856

PATIENT
  Age: 30 Year
  Sex: Female
  Weight: 98 kg

DRUGS (2)
  1. LYRICA [Suspect]
     Indication: BACK PAIN
  2. ORAL CONTRACEPTIVE NOS [Concomitant]

REACTIONS (1)
  - THROMBOPHLEBITIS [None]
